FAERS Safety Report 6152343-1 (Version None)
Quarter: 2009Q2

REPORT INFORMATION
  Report Type: 
  Country: None (occurrence: None)
  Receive Date: 20090409
  Receipt Date: 20090325
  Transmission Date: 20091009
  Serious: Yes (Congenital Anomaly)
  Sender: FDA-Public Use
  Company Number: 8020231

PATIENT
  Sex: Female
  Weight: 6.6 kg

DRUGS (7)
  1. KEPPRA [Suspect]
     Indication: EPILEPSY
     Dosage: 3000 MG /D TRP
     Route: 048
     Dates: start: 20060501, end: 20060929
  2. KEPPRA [Suspect]
     Indication: EPILEPSY
     Dosage: 4000 MG /D TRP
     Route: 064
     Dates: start: 20060929, end: 20061127
  3. KEPPRA [Suspect]
     Indication: EPILEPSY
     Dosage: 4500 MG /D TRP
     Route: 064
     Dates: start: 20061127, end: 20070220
  4. KEPPRA [Suspect]
     Indication: EPILEPSY
     Dosage: 4500 MG /D TRM
     Route: 063
     Dates: start: 20070220, end: 20070401
  5. LAMICTAL [Concomitant]
  6. FOLIC ACID [Concomitant]
  7. MULTI-VITAMINS [Concomitant]

REACTIONS (6)
  - ATRIAL SEPTAL DEFECT [None]
  - CONGENITAL CHOROID PLEXUS CYST [None]
  - DEVELOPMENTAL DELAY [None]
  - HYPOTONIA [None]
  - MATERNAL DRUGS AFFECTING FOETUS [None]
  - VENTRICULAR SEPTAL DEFECT [None]
